FAERS Safety Report 6420660-3 (Version None)
Quarter: 2009Q4

REPORT INFORMATION
  Report Type: 
  Country: None (occurrence: None)
  Receive Date: 20091027
  Receipt Date: 20091019
  Transmission Date: 20100525
  Serious: Yes (Hospitalization)
  Sender: FDA-Public Use
  Company Number: MOZO-1000246

PATIENT
  Age: 69 Year
  Sex: Male
  Weight: 77.8 kg

DRUGS (3)
  1. MOZOBIL [Suspect]
     Indication: HAEMATOPOIETIC STEM CELL MOBILISATION
     Dosage: 240 MCG/KG, ONCE, INTRAVENOUS, 160 MCG/KG, ONCE, INTRAVENOUS
     Route: 042
     Dates: start: 20090506, end: 20090506
  2. MOZOBIL [Suspect]
     Indication: HAEMATOPOIETIC STEM CELL MOBILISATION
     Dosage: 240 MCG/KG, ONCE, INTRAVENOUS, 160 MCG/KG, ONCE, INTRAVENOUS
     Route: 042
     Dates: start: 20090511, end: 20090511
  3. GRANULOCYTE COLONY STIMULATING FACTOR (GRANULOCYTE COLONY STIMULATING [Concomitant]

REACTIONS (5)
  - BACTERIAL INFECTION [None]
  - BLOOD CULTURE POSITIVE [None]
  - BLOOD POTASSIUM DECREASED [None]
  - CLOSTRIDIUM DIFFICILE COLITIS [None]
  - LABORATORY TEST INTERFERENCE [None]
